FAERS Safety Report 10015845 (Version 3)
Quarter: 2014Q4

REPORT INFORMATION
  Report Type: Report from Study
  Country: JP (occurrence: JP)
  Receive Date: 20140317
  Receipt Date: 20141019
  Transmission Date: 20150528
  Serious: Yes (Death)
  Sender: FDA-Public Use
  Company Number: JP-BRISTOL-MYERS SQUIBB COMPANY-20479200

PATIENT
  Age: 70 Year
  Sex: Female
  Weight: 85.9 kg

DRUGS (10)
  1. ELIQUIS [Suspect]
     Active Substance: APIXABAN
     Indication: THROMBOSIS PROPHYLAXIS
     Dosage: 24JAN2014
     Route: 048
     Dates: start: 20131021, end: 20140207
  2. AZILSARTAN MEDOXOMIL [Concomitant]
     Active Substance: AZILSARTAN KAMEDOXOMIL
     Indication: HYPERTENSION
  3. MAINTATE [Concomitant]
     Active Substance: BISOPROLOL FUMARATE
  4. URSO [Concomitant]
     Active Substance: URSODIOL
  5. VILDAGLIPTIN [Concomitant]
     Active Substance: VILDAGLIPTIN
  6. VILDAGLIPTIN [Concomitant]
     Active Substance: VILDAGLIPTIN
     Indication: DIABETES MELLITUS
  7. BISOPROLOL FUMARATE. [Concomitant]
     Active Substance: BISOPROLOL FUMARATE
  8. EPLERENONE. [Suspect]
     Active Substance: EPLERENONE
     Dosage: FILM-COATED TABLET
     Route: 048
  9. FEBUXOSTAT. [Concomitant]
     Active Substance: FEBUXOSTAT
  10. FEBUXOSTAT. [Concomitant]
     Active Substance: FEBUXOSTAT
     Indication: HYPERURICAEMIA

REACTIONS (1)
  - Death [Fatal]
